FAERS Safety Report 8184126-5 (Version None)
Quarter: 2012Q1

REPORT INFORMATION
  Report Type: 
  Country: None (occurrence: None)
  Receive Date: 20120305
  Receipt Date: 20120227
  Transmission Date: 20120608
  Serious: Yes (Other)
  Sender: FDA-Public Use
  Company Number: US-PFIZER INC-2012041761

PATIENT
  Sex: Female
  Weight: 70.748 kg

DRUGS (6)
  1. LEVOTHYROXINE [Concomitant]
     Indication: THYROID DISORDER
     Dosage: 50 MG,DAILY
     Route: 048
  2. LORTAB [Suspect]
     Indication: SPONDYLITIS
     Dosage: 7.5MG DAILY
     Route: 048
  3. LORTAB [Suspect]
     Indication: PAIN IN EXTREMITY
     Dosage: 10 MG,DAILY
     Route: 048
     Dates: start: 20100101
  4. TRIAMTERENE AND HYDROCHLOROTHIAZIDE [Concomitant]
     Indication: HYPERTENSION
     Dosage: DAILY
     Route: 048
  5. MELOXICAM [Concomitant]
     Indication: SPONDYLITIS
     Dosage: 15 MG,DAILY
     Route: 048
  6. LYRICA [Suspect]
     Indication: NEUROPATHY PERIPHERAL
     Dosage: 75 MG,DAILY
     Route: 048
     Dates: start: 20111101, end: 20110101

REACTIONS (6)
  - SOMNOLENCE [None]
  - FEELING ABNORMAL [None]
  - FEELING DRUNK [None]
  - IMPAIRED DRIVING ABILITY [None]
  - HYPOKINESIA [None]
  - DYSSTASIA [None]
